FAERS Safety Report 4920040-3 (Version None)
Quarter: 2006Q1

REPORT INFORMATION
  Report Type: 
  Country: None (occurrence: None)
  Receive Date: 20060217
  Receipt Date: 20060201
  Transmission Date: 20060701
  Serious: Yes (Death, Other)
  Sender: FDA-Public Use
  Company Number: MAG-2006-0000424

PATIENT
  Age: 76 Year
  Sex: Male

DRUGS (7)
  1. OXYCODONE HCL [Suspect]
     Indication: CANCER PAIN
     Dosage: SEE IMAGE
     Route: 048
     Dates: start: 20041004, end: 20041008
  2. OXYCODONE HCL [Suspect]
     Indication: CANCER PAIN
     Dosage: SEE IMAGE
     Route: 048
     Dates: start: 20041009, end: 20041013
  3. MORPHINE [Suspect]
     Indication: CANCER PAIN
     Dosage: 5 MG, DAILY, ORAL
     Route: 048
     Dates: start: 20041010, end: 20041013
  4. VOLTAREN [Suspect]
     Indication: CANCER PAIN
     Dosage: 75 MG, DAILY, ORAL
     Route: 048
     Dates: start: 20041004, end: 20041013
  5. NOVAMIN (PROCHLORPERAZINE) [Concomitant]
  6. MAGNESIUM OXIDE (MAGNESIUM OXIDE) [Concomitant]
  7. PROTECADIN [Concomitant]

REACTIONS (14)
  - ANOREXIA [None]
  - BLOOD PRESSURE DECREASED [None]
  - CARDIAC ARREST [None]
  - CONVULSION [None]
  - FAECES HARD [None]
  - GASTRIC ULCER [None]
  - ILEUS [None]
  - MALAISE [None]
  - PERITONITIS [None]
  - PYREXIA [None]
  - RECTAL PERFORATION [None]
  - RESTLESSNESS [None]
  - SENSORY DISTURBANCE [None]
  - SEPTIC SHOCK [None]
